FAERS Safety Report 5070218-6 (Version None)
Quarter: 2006Q3

REPORT INFORMATION
  Report Type: 
  Country: None (occurrence: None)
  Receive Date: 20060731
  Receipt Date: 20060719
  Transmission Date: 20061208
  Serious: Yes (Death)
  Sender: FDA-Public Use
  Company Number: 2006JP002279

PATIENT
  Age: 35 Year
  Sex: Male

DRUGS (3)
  1. PROGRAF [Suspect]
     Dosage: IV DRIP
     Route: 041
  2. DENOSINE (GANCICLOVIR) [Concomitant]
  3. ARASENA A (VIDARABINE) [Concomitant]

REACTIONS (1)
  - ENCEPHALOPATHY [None]
